FAERS Safety Report 22789969 (Version 2)
Quarter: 2023Q4

REPORT INFORMATION
  Report Type: Report from Study
  Country: US (occurrence: US)
  Receive Date: 20230804
  Receipt Date: 20231012
  Transmission Date: 20240110
  Serious: Yes (Hospitalization)
  Sender: FDA-Public Use
  Company Number: US-BAUSCH-BL-2023-011790

PATIENT
  Age: 67 Year
  Sex: Female

DRUGS (1)
  1. TRULANCE [Suspect]
     Active Substance: PLECANATIDE
     Indication: Product used for unknown indication
     Dosage: DOSE: 30 DAYS
     Route: 048

REACTIONS (2)
  - Hospitalisation [Unknown]
  - Product use issue [Unknown]
